FAERS Safety Report 8315703-6 (Version None)
Quarter: 2012Q2

REPORT INFORMATION
  Report Type: 
  Country: None (occurrence: None)
  Receive Date: 20120426
  Receipt Date: 20120403
  Transmission Date: 20120825
  Serious: Yes (Hospitalization)
  Sender: FDA-Public Use
  Company Number: JP-ABBOTT-12P-087-0929510-00

PATIENT
  Age: 66 Year
  Sex: Male

DRUGS (15)
  1. SEROQUEL [Suspect]
     Indication: AGGRESSION
     Dosage: 200 MG DAILY
     Route: 048
  2. HALOPERIDOL [Suspect]
     Indication: AGGRESSION
  3. HALOPERIDOL [Suspect]
     Indication: INSOMNIA
  4. RISPERIDONE [Suspect]
     Indication: INSOMNIA
  5. LEVOMEPROMAZINE MALEATE [Suspect]
     Indication: IMPULSIVE BEHAVIOUR
     Dosage: 10 MG DAILY
  6. LEVOMEPROMAZINE MALEATE [Suspect]
     Indication: INSOMNIA
  7. RISPERIDONE [Suspect]
     Indication: AGGRESSION
  8. NITRAZEPAM [Concomitant]
     Indication: PRODUCT USED FOR UNKNOWN INDICATION
     Route: 048
  9. RISPERIDONE [Suspect]
     Indication: IMPULSIVE BEHAVIOUR
     Dosage: 0.5 MG DAILY
  10. LEVOMEPROMAZINE MALEATE [Suspect]
     Indication: AGGRESSION
  11. AKINETON [Suspect]
     Indication: PRODUCT USED FOR UNKNOWN INDICATION
     Dosage: 2 MG DAILY
  12. HALOPERIDOL [Suspect]
     Indication: IMPULSIVE BEHAVIOUR
     Dosage: 0.75 MG DAILY
  13. SEROQUEL [Suspect]
     Indication: INSOMNIA
  14. FLUNITRAZEPAM [Concomitant]
     Indication: INSOMNIA
     Dosage: 2 MG DAILY
  15. SEROQUEL [Suspect]
     Indication: IMPULSIVE BEHAVIOUR
     Dosage: 25 MG DAILY
     Route: 048

REACTIONS (1)
  - AKATHISIA [None]
